FAERS Safety Report 8677042 (Version 2)
Quarter: 2012Q4

REPORT INFORMATION
  Report Type: 
  Country: US (occurrence: US)
  Receive Date: 20120723
  Receipt Date: 20121106
  Transmission Date: 20130627
  Serious: Yes (Other)
  Sender: FDA-Public Use
  Company Number: US-US-EMD SERONO, INC.-7147839

PATIENT
  Sex: Female
  Weight: 140 kg

DRUGS (2)
  1. REBIF [Suspect]
     Indication: MULTIPLE SCLEROSIS
     Route: 058
     Dates: start: 20070410
  2. ALEVE [Concomitant]
     Indication: PREMEDICATION

REACTIONS (9)
  - Diabetes mellitus [Not Recovered/Not Resolved]
  - Viral infection [Not Recovered/Not Resolved]
  - Blood glucose increased [Unknown]
  - Injection site scar [Not Recovered/Not Resolved]
  - Multiple sclerosis relapse [Not Recovered/Not Resolved]
  - Malaise [Not Recovered/Not Resolved]
  - Injection site erythema [Not Recovered/Not Resolved]
  - Injection site mass [Not Recovered/Not Resolved]
  - Injection site bruising [Not Recovered/Not Resolved]
